FAERS Safety Report 25691775 (Version 2)
Quarter: 2025Q3

REPORT INFORMATION
  Report Type: Spontaneous
  Country: RU (occurrence: RU)
  Receive Date: 20250818
  Receipt Date: 20250825
  Transmission Date: 20251020
  Serious: Yes (Other)
  Sender: NOVARTIS
  Company Number: RU-002147023-NVSC2025RU126219

PATIENT
  Sex: Male

DRUGS (6)
  1. DABRAFENIB [Suspect]
     Active Substance: DABRAFENIB
     Indication: Metastatic malignant melanoma
     Dosage: 150 MG, BID
     Route: 048
  2. DABRAFENIB [Suspect]
     Active Substance: DABRAFENIB
     Dosage: 300 MG, BID
     Route: 065
     Dates: start: 202310
  3. DABRAFENIB [Suspect]
     Active Substance: DABRAFENIB
     Route: 065
  4. TRAMETINIB [Suspect]
     Active Substance: TRAMETINIB
     Indication: Metastatic malignant melanoma
     Dosage: 2 MG, QD
     Route: 065
  5. TRAMETINIB [Suspect]
     Active Substance: TRAMETINIB
     Dosage: 2 MG, BID
     Route: 065
     Dates: start: 202310
  6. TRAMETINIB [Suspect]
     Active Substance: TRAMETINIB
     Route: 065

REACTIONS (6)
  - Malignant neoplasm progression [Recovering/Resolving]
  - Metastatic malignant melanoma [Recovering/Resolving]
  - Dermatitis acneiform [Recovered/Resolved]
  - Pyrexia [Recovered/Resolved]
  - Muscular weakness [Recovered/Resolved]
  - Off label use [Unknown]
